FAERS Safety Report 23056689 (Version 3)
Quarter: 2023Q4

REPORT INFORMATION
  Report Type: Report from Study
  Country: GB (occurrence: GB)
  Receive Date: 20231012
  Receipt Date: 20231025
  Transmission Date: 20240109
  Serious: Yes (Hospitalization, Other)
  Sender: FDA-Public Use
  Company Number: GB-ABBVIE-4238949

PATIENT
  Age: 77 Year
  Sex: Male

DRUGS (8)
  1. CARBIDOPA\LEVODOPA [Suspect]
     Active Substance: CARBIDOPA\LEVODOPA
     Indication: Parkinson^s disease
     Dosage: MD:10.8, ED:3.1,CR:4.2, 20MGS/5MGS
     Route: 050
     Dates: start: 2023, end: 2023
  2. CARBIDOPA\LEVODOPA [Suspect]
     Active Substance: CARBIDOPA\LEVODOPA
     Dosage: MD 10.8MLS, ED: 3.1MLS AND CR 4.0MLS
     Route: 050
     Dates: start: 2023, end: 2023
  3. CARBIDOPA\LEVODOPA [Suspect]
     Active Substance: CARBIDOPA\LEVODOPA
     Dosage: MD:10.8MLS, CR:2.0MLS, ED:1.5MLS, NIGHT CR:1.2MLS
     Route: 050
     Dates: start: 2023, end: 2023
  4. CARBIDOPA\LEVODOPA [Suspect]
     Active Substance: CARBIDOPA\LEVODOPA
     Dosage: MD:10.8MLS CR:4.1MLS ED:3.1MLS
     Route: 050
     Dates: start: 2023, end: 2023
  5. CARBIDOPA\LEVODOPA [Suspect]
     Active Substance: CARBIDOPA\LEVODOPA
     Dosage: MD:10.8MLS CR:3.7MLS ED:3.1MLS
     Route: 050
     Dates: start: 2023
  6. SINEMET CR [Concomitant]
     Active Substance: CARBIDOPA\LEVODOPA
     Indication: Product used for unknown indication
     Dosage: 25/100MGS
     Route: 065
  7. SINEMET CR [Concomitant]
     Active Substance: CARBIDOPA\LEVODOPA
     Indication: Product used for unknown indication
     Dosage: 50/200MGS?FREQUENCY TEXT: AT 22:00 HOURS
     Route: 065
  8. CARBIDOPA\ENTACAPONE\LEVODOPA [Concomitant]
     Active Substance: CARBIDOPA\ENTACAPONE\LEVODOPA
     Indication: Product used for unknown indication
     Dosage: FREQUENCY TEXT: AT 3AM

REACTIONS (29)
  - Paranoia [Unknown]
  - Intrusive thoughts [Unknown]
  - Hallucination, auditory [Recovered/Resolved]
  - Emotional distress [Not Recovered/Not Resolved]
  - Cognitive disorder [Not Recovered/Not Resolved]
  - Freezing phenomenon [Not Recovered/Not Resolved]
  - Psychotic disorder [Not Recovered/Not Resolved]
  - On and off phenomenon [Not Recovered/Not Resolved]
  - Depressed mood [Unknown]
  - Mobility decreased [Not Recovered/Not Resolved]
  - Abnormal dreams [Unknown]
  - Unevaluable event [Unknown]
  - Blood pressure decreased [Unknown]
  - Aggression [Unknown]
  - Balance disorder [Unknown]
  - Feeding disorder [Unknown]
  - Fall [Unknown]
  - Gait disturbance [Unknown]
  - Blood pressure systolic abnormal [Unknown]
  - Hallucination, auditory [Recovered/Resolved]
  - Infection [Unknown]
  - Dyskinesia [Unknown]
  - Fall [Unknown]
  - Dysphonia [Unknown]
  - Anxiety [Unknown]
  - Anger [Not Recovered/Not Resolved]
  - Unevaluable event [Unknown]
  - Unevaluable event [Unknown]
  - Agitation [Unknown]

NARRATIVE: CASE EVENT DATE: 20230101
